FAERS Safety Report 11913160 (Version 2)
Quarter: 2016Q1

REPORT INFORMATION
  Report Type: Spontaneous
  Country: US (occurrence: US)
  Receive Date: 20160113
  Receipt Date: 20160120
  Transmission Date: 20160526
  Serious: Yes (Other)
  Sender: FDA-Public Use
  Company Number: US-UNITED THERAPEUTICS-UNT-2015-016592

PATIENT
  Age: 79 Year
  Sex: Male
  Weight: 87.75 kg

DRUGS (2)
  1. LETAIRIS [Suspect]
     Active Substance: AMBRISENTAN
     Indication: PULMONARY HYPERTENSION
     Dosage: 10 MG, QD
     Route: 065
     Dates: start: 20110203
  2. TYVASO [Suspect]
     Active Substance: TREPROSTINIL
     Indication: PULMONARY ARTERIAL HYPERTENSION
     Dosage: 54-72 ?G, QID
     Dates: start: 20100310

REACTIONS (6)
  - Hypotension [Unknown]
  - Dizziness [Unknown]
  - End stage renal disease [Unknown]
  - Balance disorder [Unknown]
  - Product use issue [Unknown]
  - Syncope [Unknown]

NARRATIVE: CASE EVENT DATE: 201512
